FAERS Safety Report 11906369 (Version 1)
Quarter: 2016Q1

REPORT INFORMATION
  Report Type: Spontaneous
  Country: US (occurrence: None)
  Receive Date: 20160108
  Receipt Date: 20160108
  Transmission Date: 20160526
  Serious: Yes (Life-Threatening)
  Sender: FDA-Public Use
  Company Number: None

PATIENT
  Age: 30 Year
  Sex: Female

DRUGS (10)
  1. DOXYLAMINE SUCCINATE. [Concomitant]
     Active Substance: DOXYLAMINE SUCCINATE
  2. TYLENOL [Concomitant]
     Active Substance: ACETAMINOPHEN
  3. FERAHEME [Suspect]
     Active Substance: FERUMOXYTOL NON-STOICHIOMETRIC MAGNETITE
     Indication: IRON DEFICIENCY ANAEMIA
  4. NUVARING [Concomitant]
     Active Substance: ETHINYL ESTRADIOL\ETONOGESTREL
  5. METOPROLOL. [Concomitant]
     Active Substance: METOPROLOL
  6. LOPERAMIDE [Concomitant]
     Active Substance: LOPERAMIDE
  7. BUDESONIDE. [Concomitant]
     Active Substance: BUDESONIDE
  8. CIPRO [Concomitant]
     Active Substance: CIPROFLOXACIN HYDROCHLORIDE
  9. HUMIRA [Concomitant]
     Active Substance: ADALIMUMAB
  10. HYOSCYAMINE (LEVBID) [Concomitant]

REACTIONS (3)
  - Drug hypersensitivity [None]
  - Hypertension [None]
  - No reaction on previous exposure to drug [None]

NARRATIVE: CASE EVENT DATE: 20151228
